FAERS Safety Report 8327039-8 (Version None)
Quarter: 2012Q2

REPORT INFORMATION
  Report Type: 
  Country: None (occurrence: None)
  Receive Date: 20120501
  Receipt Date: 20120427
  Transmission Date: 20120825
  Serious: Yes (Death, Other)
  Sender: FDA-Public Use
  Company Number: BE-ABBOTT-12P-013-0930000-00

PATIENT
  Sex: Male

DRUGS (5)
  1. METHYLPREDNISOLONE [Concomitant]
     Indication: CROHN'S DISEASE
     Route: 048
     Dates: start: 20110322, end: 20110401
  2. METHYLPREDNISOLONE [Concomitant]
     Route: 048
     Dates: start: 20110412
  3. PANTOPRAZOLE [Concomitant]
     Indication: OESOPHAGITIS
     Route: 048
     Dates: start: 20110322
  4. HUMIRA [Suspect]
     Indication: CROHN'S DISEASE
     Route: 058
  5. METHYLPREDNISOLONE [Concomitant]
     Route: 048
     Dates: start: 20110402, end: 20110411

REACTIONS (1)
  - OESOPHAGEAL SQUAMOUS CELL CARCINOMA [None]
